FAERS Safety Report 9134264 (Version 1)
Quarter: 2013Q1

REPORT INFORMATION
  Report Type: Spontaneous
  Country: DE (occurrence: DE)
  Receive Date: 20130304
  Receipt Date: 20130304
  Transmission Date: 20140127
  Serious: Yes (Other)
  Sender: FDA-Public Use
  Company Number: DE-ENDO PHARMACEUTICALS INC.-VANT20100053

PATIENT
  Sex: Male

DRUGS (3)
  1. VANTAS [Suspect]
     Indication: PROSTATE CANCER
     Route: 058
     Dates: start: 20100223
  2. BICLUTAMIDE [Concomitant]
     Indication: BLOOD TESTOSTERONE
     Dosage: 150 MG
     Route: 065
     Dates: start: 201004
  3. ELIGARD DEPOT [Concomitant]
     Dates: start: 20100601

REACTIONS (3)
  - Drug ineffective [Not Recovered/Not Resolved]
  - Prostatic specific antigen increased [Not Recovered/Not Resolved]
  - Blood testosterone increased [Not Recovered/Not Resolved]
